FAERS Safety Report 12474665 (Version 3)
Quarter: 2017Q1

REPORT INFORMATION
  Report Type: Spontaneous
  Country: JP (occurrence: JP)
  Receive Date: 20160617
  Receipt Date: 20170306
  Transmission Date: 20170428
  Serious: Yes (Hospitalization)
  Sender: FDA-Public Use
  Company Number: JP-ROCHE-1777560

PATIENT
  Age: 73 Year
  Sex: Female
  Weight: 59 kg

DRUGS (22)
  1. AVASTIN [Suspect]
     Active Substance: BEVACIZUMAB
     Indication: BREAST CANCER
     Dosage: TREATMENT LINE8: COMPLETED TREATMENT CYCLE NUMBER:0?MOST RECENT DOSE PRIOR TO EVENT: 01/JUN/2016
     Route: 041
     Dates: start: 20160518
  2. PLAVIX [Concomitant]
     Active Substance: CLOPIDOGREL BISULFATE
     Route: 048
     Dates: start: 20160427
  3. OXINORM (JAPAN) [Concomitant]
     Active Substance: OXYCODONE HYDROCHLORIDE
     Dosage: TAKEN AS NEEDED.
     Route: 048
  4. MAGMITT [Concomitant]
     Active Substance: MAGNESIUM OXIDE
     Route: 048
  5. JANUVIA [Concomitant]
     Active Substance: SITAGLIPTIN PHOSPHATE
     Route: 048
  6. KYTRIL [Concomitant]
     Active Substance: GRANISETRON HYDROCHLORIDE
     Indication: PROPHYLAXIS
     Route: 048
     Dates: start: 20160601, end: 20160603
  7. OXYCONTIN [Concomitant]
     Active Substance: OXYCODONE HYDROCHLORIDE
     Route: 048
  8. BELSOMRA [Concomitant]
     Active Substance: SUVOREXANT
     Route: 048
  9. PACLITAXEL. [Suspect]
     Active Substance: PACLITAXEL
     Indication: BREAST CANCER
     Dosage: MOST RECENT DOSE ON 14/JUN/2016?COMPLETED TREATMENT CYCLE NUMBER: 0
     Route: 041
     Dates: start: 20160518
  10. CRESTOR [Concomitant]
     Active Substance: ROSUVASTATIN CALCIUM
     Route: 048
     Dates: start: 20160427
  11. GLIMICRON [Concomitant]
     Active Substance: GLICLAZIDE
     Route: 048
     Dates: start: 20160616
  12. GLIMICRON [Concomitant]
     Active Substance: GLICLAZIDE
     Route: 048
  13. RESTAMIN [Concomitant]
     Active Substance: DIPHENHYDRAMINE
     Indication: PROPHYLAXIS
     Route: 048
     Dates: start: 20160601
  14. ADALAT CC [Concomitant]
     Active Substance: NIFEDIPINE
     Route: 048
     Dates: start: 20160427
  15. ARTIST [Concomitant]
     Active Substance: CARVEDILOL
     Route: 048
     Dates: start: 20160427, end: 20160621
  16. RASPJINE [Concomitant]
     Indication: PROPHYLAXIS
     Route: 048
     Dates: start: 20160601, end: 20160605
  17. NOVAMIN (JAPAN) [Concomitant]
     Route: 048
  18. JANUVIA [Concomitant]
     Active Substance: SITAGLIPTIN PHOSPHATE
     Route: 048
     Dates: start: 20160616
  19. VOGLIBOSE [Concomitant]
     Active Substance: VOGLIBOSE
     Route: 048
  20. VOGLIBOSE [Concomitant]
     Active Substance: VOGLIBOSE
     Route: 048
     Dates: start: 20160616
  21. PACLITAXEL. [Suspect]
     Active Substance: PACLITAXEL
     Route: 041
     Dates: start: 20091015, end: 20110504
  22. LANSOPRAZOLE. [Concomitant]
     Active Substance: LANSOPRAZOLE
     Route: 048

REACTIONS (3)
  - Hiatus hernia [Recovering/Resolving]
  - Cardiac failure congestive [Recovered/Resolved]
  - Ileus [Recovering/Resolving]

NARRATIVE: CASE EVENT DATE: 20160602
